FAERS Safety Report 13230683 (Version 1)
Quarter: 2017Q1

REPORT INFORMATION
  Report Type: Spontaneous
  Country: US (occurrence: US)
  Receive Date: 20170214
  Receipt Date: 20170214
  Transmission Date: 20170428
  Serious: Yes (Life-Threatening, Hospitalization, Other)
  Sender: FDA-Public Use
  Company Number: None

PATIENT
  Age: 44 Year
  Sex: Male
  Weight: 92 kg

DRUGS (7)
  1. CAPECITABINE. [Suspect]
     Active Substance: CAPECITABINE
     Indication: CHEMOTHERAPY
     Dosage: ?          OTHER FREQUENCY:Q12H;?
     Route: 048
     Dates: start: 20170111, end: 20170126
  2. DEXAMETHASONE. [Concomitant]
     Active Substance: DEXAMETHASONE
  3. IBUPROFEN. [Concomitant]
     Active Substance: IBUPROFEN
  4. AMLODIPINE [Concomitant]
     Active Substance: AMLODIPINE BESYLATE
  5. ONDANSETRON [Concomitant]
     Active Substance: ONDANSETRON
  6. OXYCODONE [Concomitant]
     Active Substance: OXYCODONE
  7. PROCHORPERAZINE (PROCHLORPERAZINE) [Concomitant]
     Active Substance: PROCHLORPERAZINE

REACTIONS (10)
  - Amnesia [None]
  - Skin burning sensation [None]
  - Chest pain [None]
  - Syncope [None]
  - Jaw disorder [None]
  - Ventricular fibrillation [None]
  - Pulse absent [None]
  - Cardiac arrest [None]
  - Unresponsive to stimuli [None]
  - Thrombosis [None]

NARRATIVE: CASE EVENT DATE: 20170126
